FAERS Safety Report 7359906-6 (Version None)
Quarter: 2011Q1

REPORT INFORMATION
  Report Type: 
  Country: None (occurrence: None)
  Receive Date: 20110317
  Receipt Date: 20110218
  Transmission Date: 20110831
  Serious: No
  Sender: FDA-Public Use
  Company Number: US-B.I. PHARMACEUTICALS,INC./RIDGEFIELD-2011-BP-02922BP

PATIENT
  Age: 92 Year
  Sex: Female

DRUGS (2)
  1. AGGRENOX [Suspect]
     Indication: VISUAL IMPAIRMENT
     Route: 048
     Dates: start: 20110126
  2. AGGRENOX [Suspect]
     Indication: TRANSIENT ISCHAEMIC ATTACK
     Route: 048
     Dates: start: 20101201, end: 20110125

REACTIONS (5)
  - WRIST FRACTURE [None]
  - SPINAL FRACTURE [None]
  - LOWER LIMB FRACTURE [None]
  - BLOOD TEST ABNORMAL [None]
  - BLOOD DISORDER [None]
